FAERS Safety Report 8389401-7 (Version None)
Quarter: 2012Q2

REPORT INFORMATION
  Report Type: 
  Country: None (occurrence: None)
  Receive Date: 20120528
  Receipt Date: 20120524
  Transmission Date: 20120825
  Serious: Yes (Other)
  Sender: FDA-Public Use
  Company Number: US-AMGEN-USASP2011062731

PATIENT
  Age: 61 Year
  Sex: Female

DRUGS (4)
  1. ENBREL [Suspect]
     Indication: RHEUMATOID ARTHRITIS
     Dosage: 50 MG, QWK
  2. ENBREL [Suspect]
     Dosage: 50 MG, QWK
     Dates: start: 20110103
  3. PLAQUENIL [Concomitant]
     Dosage: 1 MG, QD
     Dates: start: 20080101
  4. TREXALL [Concomitant]
     Dosage: 1 MG, QWK
     Dates: start: 20070101

REACTIONS (2)
  - VAGINAL HAEMORRHAGE [None]
  - PROCEDURAL PAIN [None]
